FAERS Safety Report 21525909 (Version 2)
Quarter: 2022Q4

REPORT INFORMATION
  Report Type: Spontaneous
  Country: US (occurrence: US)
  Receive Date: 20221031
  Receipt Date: 20221101
  Transmission Date: 20230113
  Serious: No
  Sender: FDA-Public Use
  Company Number: US-ABBVIE-4170448

PATIENT
  Age: 30 Year
  Sex: Male
  Weight: 62.595 kg

DRUGS (5)
  1. DEPAKOTE [Suspect]
     Active Substance: DIVALPROEX SODIUM
     Indication: Affective disorder
     Route: 048
     Dates: start: 20221018
  2. DEPAKOTE [Suspect]
     Active Substance: DIVALPROEX SODIUM
     Indication: Affective disorder
     Dosage: STRENGTH-250 MG
     Route: 048
  3. DEPAKOTE ER [Suspect]
     Active Substance: DIVALPROEX SODIUM
     Indication: Affective disorder
     Dosage: 250 MG STRENGTH
     Route: 048
     Dates: end: 20221019
  4. NALTREXONE [Concomitant]
     Active Substance: NALTREXONE
     Indication: Lyme disease
     Dosage: LOW-DOSE (COMPOUNDED)
  5. CANNABIS SATIVA SUBSP. INDICA TOP [Concomitant]
     Active Substance: CANNABIS SATIVA SUBSP. INDICA TOP
     Indication: Lyme disease

REACTIONS (8)
  - Migraine [Recovering/Resolving]
  - Illness [Unknown]
  - Unevaluable event [Recovering/Resolving]
  - Product quality issue [Unknown]
  - COVID-19 [Recovered/Resolved]
  - Dizziness [Recovering/Resolving]
  - Feeling abnormal [Recovered/Resolved]
  - Anger [Recovering/Resolving]

NARRATIVE: CASE EVENT DATE: 20220801
